FAERS Safety Report 17903504 (Version 1)
Quarter: 2020Q2

REPORT INFORMATION
  Report Type: Spontaneous
  Country: GB (occurrence: GB)
  Receive Date: 20200617
  Receipt Date: 20200617
  Transmission Date: 20200714
  Serious: Yes (Other)
  Sender: FDA-Public Use
  Company Number: GB-AUROBINDO-AUR-APL-2020-029183

PATIENT
  Sex: Female

DRUGS (1)
  1. CITALOPRAM FILM-COATED TABLETS 20MG [Suspect]
     Active Substance: CITALOPRAM HYDROBROMIDE
     Indication: DEPRESSION
     Dosage: 10 MILLIGRAM, ONCE A DAY (HALF A TABLET ONCE A DAY FOR 6 DAYS)
     Route: 038
     Dates: start: 20200521

REACTIONS (3)
  - Blindness [Recovered/Resolved]
  - Wrong technique in product usage process [Unknown]
  - Vision blurred [Recovered/Resolved]

NARRATIVE: CASE EVENT DATE: 20200526
